FAERS Safety Report 21759523 (Version 1)
Quarter: 2022Q4

REPORT INFORMATION
  Report Type: Spontaneous
  Country: US (occurrence: None)
  Receive Date: 20221220
  Receipt Date: 20221220
  Transmission Date: 20230113
  Serious: Yes (Hospitalization)
  Sender: FDA-Public Use
  Company Number: None

PATIENT
  Sex: Female
  Weight: 78.4 kg

DRUGS (2)
  1. AZACITIDINE [Suspect]
     Active Substance: AZACITIDINE
     Dates: end: 20220516
  2. VENETOCLAX [Suspect]
     Active Substance: VENETOCLAX
     Dates: end: 20220523

REACTIONS (9)
  - Melaena [None]
  - Neutropenia [None]
  - Chromaturia [None]
  - Dysuria [None]
  - Fatigue [None]
  - Cellulitis [None]
  - Gastrointestinal haemorrhage [None]
  - Somnolence [None]
  - Post procedural erythema [None]

NARRATIVE: CASE EVENT DATE: 20220525
